FAERS Safety Report 18682264 (Version 1)
Quarter: 2020Q4

REPORT INFORMATION
  Report Type: Spontaneous
  Country: US (occurrence: US)
  Receive Date: 20201230
  Receipt Date: 20201230
  Transmission Date: 20210114
  Serious: No
  Sender: FDA-Public Use
  Company Number: US-SA-2020SA375490

PATIENT

DRUGS (2)
  1. DUPIXENT [Suspect]
     Active Substance: DUPILUMAB
     Indication: NASAL POLYPS
     Dosage: 600 MG, 1X
     Route: 058
     Dates: start: 20201221, end: 20201221
  2. DUPIXENT [Suspect]
     Active Substance: DUPILUMAB
     Indication: DERMATITIS

REACTIONS (3)
  - Muscle tightness [Not Recovered/Not Resolved]
  - Jaw disorder [Not Recovered/Not Resolved]
  - Trismus [Not Recovered/Not Resolved]

NARRATIVE: CASE EVENT DATE: 20201225
